FAERS Safety Report 18485791 (Version 1)
Quarter: 2020Q4

REPORT INFORMATION
  Report Type: Report from Study
  Country: US (occurrence: US)
  Receive Date: 20201110
  Receipt Date: 20201110
  Transmission Date: 20210114
  Serious: No
  Sender: FDA-Public Use
  Company Number: US-BIOVITRUM-2020US5148

PATIENT
  Age: 66 Year
  Sex: Female

DRUGS (1)
  1. KINERET [Suspect]
     Active Substance: ANAKINRA
     Indication: JUVENILE IDIOPATHIC ARTHRITIS
     Route: 058
     Dates: start: 20190612

REACTIONS (4)
  - Road traffic accident [Unknown]
  - Off label use [Unknown]
  - Rash [Unknown]
  - Onychomycosis [Unknown]

NARRATIVE: CASE EVENT DATE: 20190612
